FAERS Safety Report 8641014 (Version 3)
Quarter: 2013Q3

REPORT INFORMATION
  Report Type: Spontaneous
  Country: US (occurrence: US)
  Receive Date: 20120628
  Receipt Date: 20130722
  Transmission Date: 20140515
  Serious: Yes (Hospitalization)
  Sender: FDA-Public Use
  Company Number: US-BAYER-2012-061974

PATIENT
  Age: 48 Year
  Sex: Female
  Weight: 67.12 kg

DRUGS (4)
  1. YAZ [Suspect]
     Indication: ACNE
     Dosage: UNK
     Dates: start: 200812, end: 200912
  2. LEVOTHYROXINE [Concomitant]
     Dosage: 75MCG
     Dates: start: 20071016, end: 20120302
  3. ATIVAN [Concomitant]
  4. SYNTHROID [Concomitant]

REACTIONS (4)
  - Injury [None]
  - Pain [None]
  - Pain [None]
  - Myocardial infarction [None]
